FAERS Safety Report 6027962-3 (Version None)
Quarter: 2008Q4

REPORT INFORMATION
  Report Type: 
  Country: None (occurrence: None)
  Receive Date: 20081230
  Receipt Date: 20081211
  Transmission Date: 20090506
  Serious: Yes (Hospitalization)
  Sender: FDA-Public Use
  Company Number: CHNY2008DE04483

PATIENT
  Age: 41 Year
  Sex: Female

DRUGS (21)
  1. TAVEGIL (NCH) (CLEMASTINE HYDROGEN FUMARATE) UNKNOWN [Suspect]
     Indication: PRURITUS
     Dosage: 1 DF, TID, ORAL ; 1DF IN THE MORNING AND AFTERNOON, 2DF IN THE EVENING, ORAL
     Route: 048
     Dates: end: 20081212
  2. TAVEGIL (NCH) (CLEMASTINE HYDROGEN FUMARATE) UNKNOWN [Suspect]
     Indication: PRURITUS
     Dosage: 1 DF, TID, ORAL ; 1DF IN THE MORNING AND AFTERNOON, 2DF IN THE EVENING, ORAL
     Route: 048
     Dates: start: 20051206
  3. INSIDON (OPIPRAMOL HYDROCHLORIDE) UNKNOWN [Suspect]
     Indication: SLEEP DISORDER
     Dosage: 1 DF, QD, ORAL ; 1 DF, QD, ORAL
     Route: 048
     Dates: start: 20051118, end: 20051205
  4. INSIDON (OPIPRAMOL HYDROCHLORIDE) UNKNOWN [Suspect]
     Indication: SLEEP DISORDER
     Dosage: 1 DF, QD, ORAL ; 1 DF, QD, ORAL
     Route: 048
     Dates: start: 20051212
  5. PANTOPRAZOLE SODIUM [Suspect]
     Indication: PROPHYLAXIS
     Dosage: 40 MG, QD, ORAL
     Route: 048
     Dates: start: 20051206, end: 20051226
  6. OXAZEPAM [Suspect]
     Indication: SLEEP DISORDER
     Dosage: 1 DF, QD, ORAL
     Route: 048
     Dates: start: 20051207
  7. CETIRIZIN HEXAL (NGX) (CETIRIZINE) [Suspect]
     Indication: PRURITUS
     Dosage: 1 DF, QD, ORAL
     Route: 048
     Dates: start: 20051212, end: 20051227
  8. ZACPAC (AMOXICILLIN TRIHYDRATE, CLARITHROMYCIN, PANTOPRAZOLE SODIUM) [Suspect]
     Indication: HELICOBACTER INFECTION
     Dosage: ORAL
     Route: 048
     Dates: start: 20051129, end: 20051202
  9. VALETTE (DIENOGEST, ETHINYLESTRADIOL) [Suspect]
     Indication: CONTRACEPTION
     Dosage: 1 DF, QD, ORAL
     Route: 048
     Dates: start: 20030101, end: 20051227
  10. IMESON (NITRAZEPAM) [Suspect]
     Indication: SLEEP DISORDER
     Dosage: 1 DF, QD, ORAL ; 1 DF, QD, ORAL
     Route: 048
     Dates: start: 20051202, end: 20051205
  11. IMESON (NITRAZEPAM) [Suspect]
     Indication: SLEEP DISORDER
     Dosage: 1 DF, QD, ORAL ; 1 DF, QD, ORAL
     Route: 048
     Dates: start: 20051212, end: 20051227
  12. URBASON /GFR/ (METHYLPREDNISOLONE) [Suspect]
     Indication: SKIN DISORDER
     Dosage: SEE IMAGE
     Route: 048
     Dates: start: 20051201, end: 20051201
  13. URBASON /GFR/ (METHYLPREDNISOLONE) [Suspect]
     Indication: SKIN DISORDER
     Dosage: SEE IMAGE
     Route: 048
     Dates: start: 20051201, end: 20051201
  14. URBASON /GFR/ (METHYLPREDNISOLONE) [Suspect]
     Indication: SKIN DISORDER
     Dosage: SEE IMAGE
     Route: 048
     Dates: start: 20051201, end: 20051201
  15. URBASON /GFR/ (METHYLPREDNISOLONE) [Suspect]
     Indication: SKIN DISORDER
     Dosage: SEE IMAGE
     Route: 048
     Dates: start: 20051201, end: 20051201
  16. URBASON /GFR/ (METHYLPREDNISOLONE) [Suspect]
     Indication: SKIN DISORDER
     Dosage: SEE IMAGE
     Route: 048
     Dates: start: 20051206, end: 20051201
  17. URBASON /GFR/ (METHYLPREDNISOLONE) [Suspect]
     Indication: SKIN DISORDER
     Dosage: SEE IMAGE
     Route: 048
     Dates: start: 20051201, end: 20051227
  18. ATARAX [Suspect]
     Indication: PRURITUS
     Dosage: ORAL
     Route: 048
     Dates: start: 20051206, end: 20051227
  19. TEMAZEPAM [Suspect]
     Indication: SLEEP DISORDER
     Dosage: 1 DF, QD, ORAL
     Route: 048
     Dates: start: 20051208, end: 20051211
  20. DERMOXIN (CLOBETASOL PROPIONATE) [Suspect]
     Dosage: 1 DF, QD, TOPICAL
     Route: 061
     Dates: start: 20051206, end: 20051211
  21. DERMOXIN (CLOBETASOL PROPIONATE) [Suspect]
     Dosage: 1 DF, QD, TOPICAL
     Route: 061
     Dates: start: 20051212, end: 20051227

REACTIONS (2)
  - DRUG ERUPTION [None]
  - STEVENS-JOHNSON SYNDROME [None]
